FAERS Safety Report 8217192-9 (Version None)
Quarter: 2012Q1

REPORT INFORMATION
  Report Type: 
  Country: None (occurrence: None)
  Receive Date: 20120319
  Receipt Date: 20120305
  Transmission Date: 20120608
  Serious: Yes (Hospitalization, Other)
  Sender: FDA-Public Use
  Company Number: AU-RANBAXY-2012RR-53738

PATIENT
  Age: 26 Year
  Sex: Female

DRUGS (8)
  1. CITALOPRAM HYDROBROMIDE [Suspect]
     Indication: ANTIDEPRESSANT THERAPY
     Dosage: UNK
     Route: 065
  2. PAROXETINE HCL [Suspect]
     Indication: STRESS
     Dosage: UNK
     Route: 065
  3. PAROXETINE HCL [Suspect]
     Indication: MENTAL DISORDER
     Dosage: 20 MG/DAY
     Route: 065
  4. VENLAFAXINE [Suspect]
     Indication: MENTAL DISORDER
     Dosage: 37.5 MG/DAY
     Route: 065
  5. FLUOXETINE [Suspect]
     Indication: ANTIDEPRESSANT THERAPY
     Dosage: UNK
     Route: 065
  6. SERTRALINE HYDROCHLORIDE [Suspect]
     Indication: ANTIDEPRESSANT THERAPY
     Dosage: UNK
     Route: 065
  7. PAROXETINE HCL [Suspect]
     Dosage: UNK
     Route: 065
  8. VENLAFAXINE [Suspect]
     Dosage: 300 MG/DAY
     Route: 065

REACTIONS (5)
  - OVERDOSE [None]
  - AKINESIA [None]
  - AKATHISIA [None]
  - SUICIDE ATTEMPT [None]
  - PHYSICAL ASSAULT [None]
